FAERS Safety Report 9562653 (Version 2)
Quarter: 2013Q4

REPORT INFORMATION
  Report Type: Spontaneous
  Country: US (occurrence: US)
  Receive Date: 20130927
  Receipt Date: 20131104
  Transmission Date: 20140711
  Serious: No
  Sender: FDA-Public Use
  Company Number: US-009507513-1309USA010997

PATIENT
  Age: 71 Year
  Sex: Female

DRUGS (2)
  1. STERILE DILUENT [Suspect]
     Dosage: UNK
     Dates: start: 20130923
  2. ZOSTAVAX [Concomitant]
     Indication: PROPHYLAXIS
     Dates: start: 20130923, end: 20130923

REACTIONS (2)
  - Expired drug administered [Unknown]
  - No adverse event [Unknown]
